FAERS Safety Report 21102234 (Version 1)
Quarter: 2022Q3

REPORT INFORMATION
  Report Type: Spontaneous
  Country: CN (occurrence: CN)
  Receive Date: 20220719
  Receipt Date: 20220719
  Transmission Date: 20221026
  Serious: Yes (Life-Threatening, Hospitalization, Other)
  Sender: FDA-Public Use
  Company Number: CN-PFIZER INC-202200944427

PATIENT

DRUGS (3)
  1. AVIBACTAM SODIUM\CEFTAZIDIME [Suspect]
     Active Substance: AVIBACTAM SODIUM\CEFTAZIDIME
     Indication: Enterobacter infection
     Dosage: 62.5 MG/KG, TID
     Route: 042
  2. TIGECYCLINE [Concomitant]
     Active Substance: TIGECYCLINE
     Indication: Enterobacter infection
     Dosage: UNK
  3. MEROPENEM [Concomitant]
     Active Substance: MEROPENEM
     Indication: Enterobacter infection
     Dosage: UNK

REACTIONS (2)
  - Blood alkaline phosphatase increased [Unknown]
  - Gamma-glutamyltransferase increased [Unknown]
